FAERS Safety Report 4284618-5 (Version None)
Quarter: 2004Q1

REPORT INFORMATION
  Report Type: 
  Country: None (occurrence: None)
  Receive Date: 20040130
  Receipt Date: 20040115
  Transmission Date: 20041129
  Serious: Yes (Hospitalization)
  Sender: FDA-Public Use
  Company Number: 234860

PATIENT
  Age: 60 Year
  Sex: Female
  Weight: 65 kg

DRUGS (3)
  1. ACTIVELLE [Suspect]
     Indication: HORMONE REPLACEMENT THERAPY
     Dosage: PER ORAL
     Route: 048
     Dates: end: 20031001
  2. METOPROLOL SUCCINATE [Concomitant]
  3. ATORVASTATIN [Concomitant]

REACTIONS (7)
  - ANTERIOR SPINAL ARTERY SYNDROME [None]
  - BRAIN STEM ISCHAEMIA [None]
  - DEMYELINATION [None]
  - DYSAESTHESIA [None]
  - HEARING IMPAIRED [None]
  - NAUSEA [None]
  - VERTIGO [None]
